FAERS Safety Report 25300034 (Version 1)
Quarter: 2025Q2

REPORT INFORMATION
  Report Type: Spontaneous
  Country: US (occurrence: None)
  Receive Date: 20250510
  Receipt Date: 20250510
  Transmission Date: 20250717
  Serious: Yes (Hospitalization, Other)
  Sender: FDA-CTU
  Company Number: None

PATIENT
  Sex: Male
  Weight: 94.05 kg

DRUGS (3)
  1. DEXLANSOPRAZOLE [Suspect]
     Active Substance: DEXLANSOPRAZOLE
     Indication: Gastrooesophageal reflux disease
     Route: 048
     Dates: start: 20231114, end: 20250422
  2. Multivitamins gummies [Concomitant]
  3. Vitamin B12 gummies [Concomitant]

REACTIONS (10)
  - Back pain [None]
  - Dyspnoea exertional [None]
  - Constipation [None]
  - Diarrhoea [None]
  - Ageusia [None]
  - Weight decreased [None]
  - Tremor [None]
  - Cholecystitis acute [None]
  - Dyspnoea [None]
  - Pulmonary embolism [None]
